FAERS Safety Report 12795181 (Version 16)
Quarter: 2019Q4

REPORT INFORMATION
  Report Type: Report from Study
  Country: CL (occurrence: CL)
  Receive Date: 20160929
  Receipt Date: 20191227
  Transmission Date: 20200122
  Serious: Yes (Hospitalization, Other)
  Sender: FDA-Public Use
  Company Number: CL-SA-2016SA135747

PATIENT
  Age: 42 Year
  Sex: Male

DRUGS (2)
  1. GANCICLOVIR. [Suspect]
     Active Substance: GANCICLOVIR
     Dosage: UNK UNK,UNK
     Route: 065
     Dates: start: 20160724
  2. ALEMTUZUMAB [Suspect]
     Active Substance: ALEMTUZUMAB
     Indication: RELAPSING-REMITTING MULTIPLE SCLEROSIS
     Dosage: 12 MG, QD
     Route: 041
     Dates: start: 20160722, end: 20160726

REACTIONS (25)
  - Brain neoplasm [Not Recovered/Not Resolved]
  - Pyrexia [Recovered/Resolved]
  - Aphthous ulcer [Recovered/Resolved]
  - Unevaluable event [Recovered/Resolved]
  - Rash pruritic [Recovered/Resolved]
  - Pyrexia [Not Recovered/Not Resolved]
  - Nasal sinus cancer [Recovering/Resolving]
  - Tachycardia [Recovered/Resolved]
  - Oral herpes [Recovered/Resolved]
  - Nasal congestion [Not Recovered/Not Resolved]
  - Pyrexia [Recovered/Resolved]
  - Wrong product administered [Unknown]
  - Hypotension [Recovered/Resolved]
  - Nasopharyngitis [Recovered/Resolved]
  - Infection [Recovered/Resolved]
  - Paraesthesia [Recovered/Resolved]
  - Sinusitis [Recovered/Resolved]
  - Oral herpes [Recovered/Resolved]
  - Respiratory symptom [Recovered/Resolved]
  - Headache [Recovered/Resolved]
  - Corona virus infection [Recovered/Resolved]
  - Visual acuity reduced [Recovered/Resolved]
  - Hypoaesthesia [Recovered/Resolved]
  - Headache [Not Recovered/Not Resolved]
  - Breath odour [Recovered/Resolved]

NARRATIVE: CASE EVENT DATE: 20160722
